FAERS Safety Report 7761651-X (Version None)
Quarter: 2011Q3

REPORT INFORMATION
  Report Type: 
  Country: None (occurrence: None)
  Receive Date: 20110920
  Receipt Date: 20110906
  Transmission Date: 20111222
  Serious: Yes (Other)
  Sender: FDA-Public Use
  Company Number: PHHO2011US15386

PATIENT

DRUGS (2)
  1. SUNITINIB MALATE [Suspect]
     Indication: METASTATIC RENAL CELL CARCINOMA
     Dosage: 37.5 MG, UNK
  2. AFINITOR [Suspect]
     Indication: METASTATIC RENAL CELL CARCINOMA
     Dosage: 5 MG, UNK

REACTIONS (5)
  - HYPERBILIRUBINAEMIA [None]
  - LYMPHOPENIA [None]
  - LEUKOPENIA [None]
  - HYPOTHYROIDISM [None]
  - INFECTION [None]
